FAERS Safety Report 21378343 (Version 2)
Quarter: 2023Q2

REPORT INFORMATION
  Report Type: Report from Study
  Country: AR (occurrence: AR)
  Receive Date: 20220927
  Receipt Date: 20230627
  Transmission Date: 20230722
  Serious: Yes (Other)
  Sender: FDA-Public Use
  Company Number: AR-NOVARTISPH-NVSC2021AR248997

PATIENT
  Age: 70 Year
  Sex: Male

DRUGS (3)
  1. COSENTYX [Suspect]
     Active Substance: SECUKINUMAB
     Indication: Psoriatic arthropathy
     Dosage: 150 MG, QMO
     Route: 058
     Dates: start: 20211001
  2. COSENTYX [Suspect]
     Active Substance: SECUKINUMAB
     Dosage: 150 MG, QMO
     Route: 058
  3. TRAMADOL [Suspect]
     Active Substance: TRAMADOL
     Indication: Product used for unknown indication
     Dosage: UNK
     Route: 065

REACTIONS (36)
  - Cervical spinal stenosis [Unknown]
  - Oropharyngeal discomfort [Not Recovered/Not Resolved]
  - Dysuria [Unknown]
  - Aphthous ulcer [Unknown]
  - Swelling face [Not Recovered/Not Resolved]
  - Bone pain [Unknown]
  - Proctalgia [Unknown]
  - Chapped lips [Unknown]
  - Blood prolactin increased [Not Recovered/Not Resolved]
  - Lip dry [Unknown]
  - Paraesthesia [Unknown]
  - Chills [Unknown]
  - Dry mouth [Unknown]
  - Laziness [Unknown]
  - Dizziness [Unknown]
  - Arthritis [Unknown]
  - Aphasia [Unknown]
  - Cough [Unknown]
  - Oropharyngeal pain [Not Recovered/Not Resolved]
  - Oral mucosal blistering [Unknown]
  - Lip swelling [Unknown]
  - Inflammation [Unknown]
  - Pain [Unknown]
  - Pain in extremity [Unknown]
  - Fatigue [Unknown]
  - Spinal pain [Unknown]
  - Back pain [Unknown]
  - Arthralgia [Unknown]
  - Illness [Unknown]
  - Malaise [Unknown]
  - Bladder pain [Unknown]
  - Fibromyalgia [Unknown]
  - Gastrointestinal disorder [Unknown]
  - Prostatic disorder [Unknown]
  - Dyspnoea [Unknown]
  - Oral herpes [Unknown]

NARRATIVE: CASE EVENT DATE: 20211018
